FAERS Safety Report 6740334-9 (Version None)
Quarter: 2010Q2

REPORT INFORMATION
  Report Type: 
  Country: None (occurrence: None)
  Receive Date: 20100521
  Receipt Date: 20100514
  Transmission Date: 20101027
  Serious: Yes (Hospitalization, Other)
  Sender: FDA-Public Use
  Company Number: 000246

PATIENT
  Sex: Female
  Weight: 80 kg

DRUGS (11)
  1. NEUPRO [Suspect]
     Indication: PARKINSON'S DISEASE
     Dosage: (2 MG 4D), (4 MG QD)
     Dates: start: 20070411, end: 20070425
  2. NEUPRO [Suspect]
     Indication: PARKINSON'S DISEASE
     Dosage: (2 MG 4D), (4 MG QD)
     Dates: start: 20070426, end: 20071107
  3. NEUPRO [Suspect]
     Indication: PARKINSON'S DISEASE
     Dosage: (2 MG 4D), (4 MG QD)
     Dates: start: 20080116, end: 20090120
  4. NEUPRO [Suspect]
     Indication: PARKINSON'S DISEASE
     Dosage: (2 MG 4D), (4 MG QD)
     Dates: start: 20090121, end: 20100120
  5. RESTEX [Concomitant]
  6. METOPROLOL TARTRATE [Concomitant]
  7. ENAHEXAL /00574902/ [Concomitant]
  8. OMEPRAZOL /00661203/ [Concomitant]
  9. MIANSERIN [Concomitant]
  10. SULPIRID [Concomitant]
  11. CIPRALEX /01588501/ [Concomitant]

REACTIONS (1)
  - PULMONARY EMBOLISM [None]
